FAERS Safety Report 24806585 (Version 4)
Quarter: 2025Q1

REPORT INFORMATION
  Report Type: Spontaneous
  Country: ES (occurrence: ES)
  Receive Date: 20250103
  Receipt Date: 20250310
  Transmission Date: 20250409
  Serious: Yes (Hospitalization, Other)
  Sender: AUROBINDO
  Company Number: ES-AUROBINDO-AUR-APL-2024-061695

PATIENT
  Age: 68 Year
  Sex: Female

DRUGS (13)
  1. VORICONAZOLE [Suspect]
     Active Substance: VORICONAZOLE
     Indication: Intervertebral discitis
     Route: 065
  2. VORICONAZOLE [Suspect]
     Active Substance: VORICONAZOLE
     Indication: Aspergillus infection
     Dosage: 8 MILLIGRAM/KILOGRAM, ONCE A DAY (4 MG/KG, 2X/DAY, EVERY 12 HOURS)
     Route: 042
  3. VORICONAZOLE [Suspect]
     Active Substance: VORICONAZOLE
     Indication: Aspergillus infection
     Dosage: 400 MILLIGRAM, ONCE A DAY
     Route: 065
  4. VORICONAZOLE [Suspect]
     Active Substance: VORICONAZOLE
     Indication: Intervertebral discitis
  5. OXALIPLATIN [Suspect]
     Active Substance: OXALIPLATIN
     Indication: Adenocarcinoma
     Route: 065
  6. OXALIPLATIN [Suspect]
     Active Substance: OXALIPLATIN
     Indication: Small intestine carcinoma
  7. CAPECITABINE [Suspect]
     Active Substance: CAPECITABINE
     Indication: Adenocarcinoma
     Route: 065
  8. CAPECITABINE [Suspect]
     Active Substance: CAPECITABINE
     Indication: Small intestine carcinoma
  9. ISAVUCONAZOLE [Concomitant]
     Active Substance: ISAVUCONAZOLE
     Indication: Intervertebral discitis
     Route: 065
  10. ISAVUCONAZOLE [Concomitant]
     Active Substance: ISAVUCONAZOLE
     Indication: Aspergillus infection
  11. MEROPENEM [Concomitant]
     Active Substance: MEROPENEM
     Indication: Pancytopenia
     Route: 065
  12. VANCOMYCIN [Concomitant]
     Active Substance: VANCOMYCIN
     Indication: Pancytopenia
     Route: 065
  13. CAPECITABINE\OXALIPLATIN [Concomitant]
     Active Substance: CAPECITABINE\OXALIPLATIN
     Indication: Adjuvant therapy
     Route: 065

REACTIONS (11)
  - Hepatotoxicity [Recovering/Resolving]
  - Photosensitivity reaction [Recovering/Resolving]
  - Neutropenic colitis [Recovering/Resolving]
  - Bronchopulmonary aspergillosis [Recovering/Resolving]
  - Intervertebral discitis [Recovering/Resolving]
  - Accidental underdose [Unknown]
  - Treatment failure [Unknown]
  - Underdose [Unknown]
  - Hepatic function abnormal [Unknown]
  - Drug ineffective [Unknown]
  - Drug intolerance [Unknown]
